FAERS Safety Report 12520509 (Version 2)
Quarter: 2019Q3

REPORT INFORMATION
  Report Type: Spontaneous
  Country: US (occurrence: US)
  Receive Date: 20160701
  Receipt Date: 20190809
  Transmission Date: 20191004
  Serious: No
  Sender: FDA-Public Use
  Company Number: US-TAKEDA-2016TUS010592

PATIENT
  Sex: Female
  Weight: 61.22 kg

DRUGS (3)
  1. CALCIUM + MAGNESIUM [Concomitant]
     Indication: ROUTINE HEALTH MAINTENANCE
     Dosage: UNK UNK, QD
     Route: 048
  2. VITAMIN D                          /00107901/ [Concomitant]
     Active Substance: ERGOCALCIFEROL
     Indication: ROUTINE HEALTH MAINTENANCE
     Dosage: UNK UNK, QD
     Route: 048
  3. DEXILANT [Suspect]
     Active Substance: DEXLANSOPRAZOLE
     Indication: PRODUCT USED FOR UNKNOWN INDICATION
     Dosage: 60 MILLIGRAM, QD
     Route: 048

REACTIONS (7)
  - Dysphonia [Unknown]
  - Pain in extremity [Unknown]
  - Headache [Unknown]
  - Middle insomnia [Unknown]
  - Nausea [Unknown]
  - Abdominal pain upper [Unknown]
  - Muscle spasms [Unknown]
